FAERS Safety Report 25779043 (Version 2)
Quarter: 2025Q3

REPORT INFORMATION
  Report Type: Spontaneous
  Country: JP (occurrence: JP)
  Receive Date: 20250909
  Receipt Date: 20250929
  Transmission Date: 20251020
  Serious: Yes (Other)
  Sender: PFIZER
  Company Number: JP-PFIZER INC-PV202500059412

PATIENT
  Age: 8 Decade
  Sex: Female

DRUGS (6)
  1. ELREXFIO [Suspect]
     Active Substance: ELRANATAMAB-BCMM
     Indication: Plasma cell myeloma
     Dates: start: 20250515
  2. ELREXFIO [Suspect]
     Active Substance: ELRANATAMAB-BCMM
     Dates: start: 20250519
  3. ELREXFIO [Suspect]
     Active Substance: ELRANATAMAB-BCMM
     Dates: start: 20250523
  4. ELREXFIO [Suspect]
     Active Substance: ELRANATAMAB-BCMM
  5. ELREXFIO [Suspect]
     Active Substance: ELRANATAMAB-BCMM
  6. ELREXFIO [Suspect]
     Active Substance: ELRANATAMAB-BCMM
     Dates: end: 20250709

REACTIONS (4)
  - Cytokine release syndrome [Recovered/Resolved]
  - Second primary malignancy [Recovering/Resolving]
  - Myelodysplastic syndrome [Recovering/Resolving]
  - Hypogammaglobulinaemia [Recovering/Resolving]

NARRATIVE: CASE EVENT DATE: 20250516
